FAERS Safety Report 7600379-3 (Version None)
Quarter: 2011Q2

REPORT INFORMATION
  Report Type: 
  Country: None (occurrence: None)
  Receive Date: 20110629
  Receipt Date: 20110622
  Transmission Date: 20111010
  Serious: Yes (Other)
  Sender: FDA-Public Use
  Company Number: ACO_25185_2011

PATIENT
  Age: 48 Year
  Sex: Female

DRUGS (12)
  1. AMPYRA [Suspect]
     Indication: GAIT DISTURBANCE
     Dosage: 10 MG, Q 12 HRS
     Dates: start: 20100401
  2. QVAR [Concomitant]
  3. COPAXONE [Concomitant]
  4. NEURONTIN [Concomitant]
  5. BACLOFEN [Concomitant]
  6. BRONCHODILATOR [Concomitant]
  7. SOLU-MEDROL [Concomitant]
  8. CHANTIX [Concomitant]
  9. ZOLOFT [Concomitant]
  10. FLONASE [Concomitant]
  11. OXYBUTYNIN (OXYBUTYNIN) [Concomitant]
  12. LIPITOR [Concomitant]

REACTIONS (7)
  - MEMORY IMPAIRMENT [None]
  - MULTIPLE SCLEROSIS RELAPSE [None]
  - DISORIENTATION [None]
  - MUSCLE SPASMS [None]
  - MOUTH INJURY [None]
  - ROAD TRAFFIC ACCIDENT [None]
  - THERAPEUTIC RESPONSE UNEXPECTED [None]
